FAERS Safety Report 8159149-2 (Version None)
Quarter: 2012Q1

REPORT INFORMATION
  Report Type: 
  Country: None (occurrence: None)
  Receive Date: 20120223
  Receipt Date: 20120213
  Transmission Date: 20120608
  Serious: Yes (Hospitalization)
  Sender: FDA-Public Use
  Company Number: US-SANOFI-AVENTIS-2012SA009623

PATIENT
  Sex: Female

DRUGS (1)
  1. PLAVIX [Suspect]

REACTIONS (1)
  - HOSPITALISATION [None]
